FAERS Safety Report 10669126 (Version 1)
Quarter: 2014Q4

REPORT INFORMATION
  Report Type: Spontaneous
  Country: GB (occurrence: GB)
  Receive Date: 20141222
  Receipt Date: 20141222
  Transmission Date: 20150529
  Serious: Yes (Other)
  Sender: FDA-Public Use
  Company Number: GB-TEVA-529998ISR

PATIENT
  Age: 76 Year
  Sex: Female
  Weight: 122 kg

DRUGS (13)
  1. INFLUENZA VIRUS [Concomitant]
     Active Substance: INFLUENZA VIRUS VACCINE
     Dates: start: 20141010, end: 20141011
  2. ULTRAPROCT [Concomitant]
     Dates: start: 20141128, end: 20141205
  3. ESTRIOL [Concomitant]
     Active Substance: ESTRIOL
     Dates: start: 20140902, end: 20140916
  4. TRAMADOL [Suspect]
     Active Substance: TRAMADOL
     Dates: start: 20141128
  5. DERMOVATE [Concomitant]
     Active Substance: CLOBETASOL
     Dates: start: 20140808, end: 20140928
  6. PREDNISOLONE. [Concomitant]
     Active Substance: PREDNISOLONE
     Dates: start: 20140926, end: 20141201
  7. CETIRIZINE [Concomitant]
     Active Substance: CETIRIZINE HYDROCHLORIDE
     Dates: start: 20140808, end: 20141003
  8. LEVOTHYROXINE [Concomitant]
     Active Substance: LEVOTHYROXINE
     Dates: start: 20140808
  9. MONTELUKAST [Concomitant]
     Active Substance: MONTELUKAST SODIUM
     Dates: start: 20140808, end: 20141003
  10. SALBUTAMOL [Concomitant]
     Active Substance: ALBUTEROL
     Dates: start: 20140808, end: 20141003
  11. CO-AMILOFRUSE [Concomitant]
     Active Substance: AMILORIDE\FUROSEMIDE
     Dates: start: 20140808, end: 20141008
  12. AMITRIPTYLINE HYDROCHLORIDE. [Concomitant]
     Active Substance: AMITRIPTYLINE HYDROCHLORIDE
     Dates: start: 20140902
  13. GERMOLOIDS [Concomitant]
     Dates: start: 20141120, end: 20141130

REACTIONS (1)
  - Feeling abnormal [Recovering/Resolving]

NARRATIVE: CASE EVENT DATE: 20141208
